FAERS Safety Report 5074984-5 (Version None)
Quarter: 2006Q3

REPORT INFORMATION
  Report Type: 
  Country: None (occurrence: None)
  Receive Date: 20060809
  Receipt Date: 20060803
  Transmission Date: 20061208
  Serious: Yes (Hospitalization)
  Sender: FDA-Public Use
  Company Number: FR-AVENTIS-200612729FR

PATIENT
  Age: 43 Year
  Sex: Female

DRUGS (2)
  1. BIRODOGYL [Suspect]
     Route: 048
     Dates: start: 20060313, end: 20060324
  2. ARIMIDEX [Concomitant]
     Route: 048

REACTIONS (1)
  - PANCREATITIS ACUTE [None]
